FAERS Safety Report 9679421 (Version 1)
Quarter: 2013Q4

REPORT INFORMATION
  Report Type: Spontaneous
  Country: US (occurrence: US)
  Receive Date: 20131109
  Receipt Date: 20131109
  Transmission Date: 20140711
  Serious: No
  Sender: FDA-Public Use
  Company Number: US-SANOFI-AVENTIS-2013SA042278

PATIENT
  Sex: Male

DRUGS (2)
  1. ALLEGRA-D [Suspect]
     Indication: MULTIPLE ALLERGIES
     Dosage: 1 TAB TWICE A DAY
     Route: 048
  2. SUDAFED [Suspect]
     Indication: INJURY

REACTIONS (1)
  - Blood pressure increased [Unknown]
